FAERS Safety Report 8924881 (Version 2)
Quarter: 2012Q4

REPORT INFORMATION
  Report Type: Report from Study
  Country: ES (occurrence: ES)
  Receive Date: 20121126
  Receipt Date: 20121130
  Transmission Date: 20130627
  Serious: Yes (Death, Other)
  Sender: FDA-Public Use
  Company Number: ES-PFIZER INC-2012237242

PATIENT
  Age: 40 Year
  Sex: Female

DRUGS (2)
  1. AXITINIB [Suspect]
     Indication: RENAL CLEAR CELL CARCINOMA
     Dosage: 5 mg, 2x/day
     Route: 048
     Dates: start: 20120810, end: 20121004
  2. SORAFENIB [Suspect]
     Indication: RENAL CELL CARCINOMA
     Dosage: UNK
     Dates: start: 20121005, end: 20121111

REACTIONS (8)
  - Disease progression [Fatal]
  - Renal cell carcinoma [Fatal]
  - Multi-organ failure [Fatal]
  - Central venous pressure increased [Unknown]
  - Pulmonary embolism [Not Recovered/Not Resolved]
  - Hyperkalaemia [Recovered/Resolved]
  - Heart rate increased [Not Recovered/Not Resolved]
  - Anaemia [Unknown]
